FAERS Safety Report 19640479 (Version 1)
Quarter: 2021Q3

REPORT INFORMATION
  Report Type: Spontaneous
  Country: FR (occurrence: FR)
  Receive Date: 20210730
  Receipt Date: 20210730
  Transmission Date: 20211014
  Serious: Yes (Hospitalization)
  Sender: FDA-Public Use
  Company Number: FR-ROCHE-2877779

PATIENT
  Age: 74 Year
  Sex: Female

DRUGS (1)
  1. ROACTEMRA [Suspect]
     Active Substance: TOCILIZUMAB
     Indication: BASEDOW^S DISEASE
     Route: 041
     Dates: start: 20210706, end: 20210706

REACTIONS (5)
  - Chest pain [Recovered/Resolved]
  - Hypertension [Recovered/Resolved]
  - Infusion related reaction [Recovered/Resolved]
  - Back pain [Recovered/Resolved]
  - Device related bacteraemia [Recovering/Resolving]

NARRATIVE: CASE EVENT DATE: 20210706
